FAERS Safety Report 9537930 (Version 3)
Quarter: 2013Q4

REPORT INFORMATION
  Report Type: Spontaneous
  Country: IT (occurrence: IT)
  Receive Date: 20130919
  Receipt Date: 20131014
  Transmission Date: 20140711
  Serious: Yes (Hospitalization)
  Sender: FDA-Public Use
  Company Number: PHHY2013IT102301

PATIENT
  Sex: Female

DRUGS (7)
  1. TRIAZOLAM [Suspect]
     Indication: INTENTIONAL SELF-INJURY
     Dosage: 8.5 MG, ONCE/SINGLE
     Route: 048
     Dates: start: 20130905, end: 20130905
  2. CARVEDILOL [Suspect]
  3. COUMADIN SODIUM [Concomitant]
  4. EUTIROX [Concomitant]
  5. METFORMIN [Concomitant]
  6. OMEPRAZOLE [Concomitant]
  7. NITROGLYCERIN [Concomitant]

REACTIONS (3)
  - Coma [Recovered/Resolved]
  - Sopor [Recovered/Resolved]
  - Drug abuse [Recovered/Resolved]
